FAERS Safety Report 26165999 (Version 2)
Quarter: 2025Q4

REPORT INFORMATION
  Report Type: Report from Study
  Country: US (occurrence: US)
  Receive Date: 20251216
  Receipt Date: 20251222
  Transmission Date: 20260117
  Serious: Yes (Other)
  Sender: ALEXION PHARMACEUTICALS
  Company Number: US-AstraZeneca-CH-01012412A

PATIENT
  Age: 58 Year
  Sex: Female
  Weight: 48.5 kg

DRUGS (1)
  1. DURVALUMAB [Suspect]
     Active Substance: DURVALUMAB
     Dosage: 1500 MILLIGRAM, 1 HR ONCE EVERY 21 DAYS

REACTIONS (1)
  - Gastric cancer [Unknown]
